FAERS Safety Report 7462604-1 (Version None)
Quarter: 2011Q2

REPORT INFORMATION
  Report Type: 
  Country: None (occurrence: None)
  Receive Date: 20110506
  Receipt Date: 20110503
  Transmission Date: 20111010
  Serious: Yes (Disabling)
  Sender: FDA-Public Use
  Company Number: FR-PFIZER INC-2008033889

PATIENT
  Age: 52 Year
  Sex: Male

DRUGS (12)
  1. NORVIR [Suspect]
     Dates: start: 20040417
  2. LYRICA [Suspect]
     Indication: TRIGEMINAL NEURALGIA
     Dosage: 75 MG, 1X/DAY
     Route: 048
     Dates: start: 20060621, end: 20060624
  3. LYRICA [Suspect]
     Dosage: 150 MG/DAY
     Dates: start: 20060625, end: 20060702
  4. COMBIVIR [Suspect]
     Dates: start: 20050928, end: 20060623
  5. RETROVIR [Suspect]
     Indication: ACQUIRED IMMUNODEFICIENCY SYNDROME
     Dates: start: 20060623
  6. VIREAD [Suspect]
     Indication: ACQUIRED IMMUNODEFICIENCY SYNDROME
     Dates: start: 20060623
  7. LEXIVA [Suspect]
     Dates: start: 20050329, end: 20060623
  8. ZOPICLONE [Concomitant]
  9. LYRICA [Suspect]
     Dosage: 525 MG.DAY
     Dates: start: 20060703, end: 20060713
  10. INVIRASE [Suspect]
     Indication: ACQUIRED IMMUNODEFICIENCY SYNDROME
     Dates: start: 20060623
  11. NEURONTIN [Suspect]
     Indication: TRIGEMINAL NEURALGIA
     Dosage: UNK
     Dates: start: 20060101, end: 20060623
  12. BACTRIM [Suspect]
     Dates: start: 19981027

REACTIONS (1)
  - OPTIC NEURITIS [None]
